FAERS Safety Report 16031609 (Version 1)
Quarter: 2019Q1

REPORT INFORMATION
  Report Type: Spontaneous
  Country: US (occurrence: US)
  Receive Date: 20190304
  Receipt Date: 20190304
  Transmission Date: 20190418
  Serious: No
  Sender: FDA-Public Use
  Company Number: US-IMPAX LABORATORIES, LLC-2018-IPXL-01787

PATIENT
  Age: 75 Year
  Sex: Male

DRUGS (2)
  1. RYTARY [Suspect]
     Active Substance: CARBIDOPA\LEVODOPA
     Indication: PARKINSON^S DISEASE
     Dosage: 48.75/195 MG, ONE CAPSULE FIVE TIMES A DAY AND 61.25/245 MG TWO CAPSULES FIVE TIMES A DAY
     Route: 065
  2. RYTARY [Suspect]
     Active Substance: CARBIDOPA\LEVODOPA
     Dosage: 48.75/195 MG, ONE CAPSULE FIVE TIMES A DAY AND 61.25/245 MG ONE CAPSULES FIVE TIMES A DAY
     Route: 065

REACTIONS (4)
  - Hypokinesia [Unknown]
  - Dysphonia [Unknown]
  - Adverse event [Recovering/Resolving]
  - Prescribed overdose [Unknown]

NARRATIVE: CASE EVENT DATE: 20180530
